FAERS Safety Report 6993112-X (Version None)
Quarter: 2010Q3

REPORT INFORMATION
  Report Type: 
  Country: None (occurrence: None)
  Receive Date: 20100917
  Receipt Date: 20100106
  Transmission Date: 20110219
  Serious: No
  Sender: FDA-Public Use
  Company Number: US-ASTRAZENECA-2010SE00732

PATIENT
  Age: 4318 Day
  Sex: Male

DRUGS (3)
  1. SEROQUEL [Suspect]
     Route: 048
  2. CONCERTA [Concomitant]
  3. KLONOPIN [Concomitant]

REACTIONS (2)
  - DRUG DOSE OMISSION [None]
  - HALLUCINATION [None]
